FAERS Safety Report 14901636 (Version 1)
Quarter: 2018Q2

REPORT INFORMATION
  Report Type: Spontaneous
  Country: US (occurrence: US)
  Receive Date: 20180429
  Receipt Date: 20180429
  Transmission Date: 20180711
  Serious: Yes (Disabling)
  Sender: FDA-Public Use
  Company Number: None

PATIENT
  Age: 56 Year
  Sex: Female
  Weight: 72 kg

DRUGS (12)
  1. ATORVSTATIN CALCIUM [Suspect]
     Active Substance: ATORVASTATIN CALCIUM
     Indication: BLOOD CHOLESTEROL INCREASED
     Dosage: ?          QUANTITY:1 TABLET(S);?
     Route: 048
     Dates: start: 20070730, end: 20180330
  2. CHANTIX [Concomitant]
     Active Substance: VARENICLINE TARTRATE
  3. NAPROXEN. [Concomitant]
     Active Substance: NAPROXEN
  4. FLEXARIL [Concomitant]
  5. ESTRIDOL ACYCLOVIR [Concomitant]
  6. VITAMIN D [Concomitant]
     Active Substance: CHOLECALCIFEROL
  7. COQ10 [Concomitant]
     Active Substance: UBIDECARENONE
  8. VITAMIN B12 [Concomitant]
     Active Substance: CYANOCOBALAMIN
  9. TURMERIC [Concomitant]
     Active Substance: HERBALS\TURMERIC
  10. GABAPENTIN. [Concomitant]
     Active Substance: GABAPENTIN
  11. PERCOCET [Concomitant]
     Active Substance: ACETAMINOPHEN\OXYCODONE HYDROCHLORIDE
  12. AMBIEN [Concomitant]
     Active Substance: ZOLPIDEM TARTRATE

REACTIONS (9)
  - Muscle spasms [None]
  - Myopathy [None]
  - Rhabdomyolysis [None]
  - Back pain [None]
  - Pain in extremity [None]
  - Pain [None]
  - Blood potassium decreased [None]
  - Blood magnesium decreased [None]
  - Dehydration [None]

NARRATIVE: CASE EVENT DATE: 20100701
